FAERS Safety Report 19234890 (Version 1)
Quarter: 2021Q2

REPORT INFORMATION
  Report Type: Spontaneous
  Country: CO (occurrence: CO)
  Receive Date: 20210509
  Receipt Date: 20210509
  Transmission Date: 20210717
  Serious: Yes (Other)
  Sender: FDA-Public Use
  Company Number: CO-AMGEN-COLSP2021071012

PATIENT
  Age: 60 Year
  Sex: Female

DRUGS (1)
  1. ENBREL [Suspect]
     Active Substance: ETANERCEPT
     Indication: PRODUCT USED FOR UNKNOWN INDICATION
     Dosage: 50 MG
     Route: 058

REACTIONS (6)
  - Spinal fracture [Not Recovered/Not Resolved]
  - Joint swelling [Unknown]
  - Amnesia [Unknown]
  - Mobility decreased [Not Recovered/Not Resolved]
  - Pain in extremity [Unknown]
  - Illness [Unknown]
